FAERS Safety Report 9917750 (Version 1)
Quarter: 2014Q1

REPORT INFORMATION
  Report Type: Report from Study
  Country: US (occurrence: US)
  Receive Date: 20140221
  Receipt Date: 20140221
  Transmission Date: 20141002
  Serious: Yes (Other)
  Sender: FDA-Public Use
  Company Number: US-ABBVIE-14P-163-1201939-00

PATIENT
  Sex: Female
  Weight: 54.48 kg

DRUGS (2)
  1. LUPRON DEPOT [Suspect]
     Indication: ENDOMETRIOSIS
  2. NORETHINDRONE [Suspect]

REACTIONS (6)
  - Pelvic pain [Not Recovered/Not Resolved]
  - Endometriosis [Recovering/Resolving]
  - Endometriosis [Not Recovered/Not Resolved]
  - Endometriosis [Not Recovered/Not Resolved]
  - Abdominal distension [Recovered/Resolved]
  - Mood swings [Recovered/Resolved]
